FAERS Safety Report 23989312 (Version 1)
Quarter: 2024Q2

REPORT INFORMATION
  Report Type: Spontaneous
  Country: US (occurrence: US)
  Receive Date: 20240619
  Receipt Date: 20240619
  Transmission Date: 20240715
  Serious: No
  Sender: FDA-Public Use
  Company Number: US-ELI_LILLY_AND_COMPANY-US202406008403

PATIENT
  Age: 21 Year
  Sex: Male

DRUGS (1)
  1. BASAGLAR [Suspect]
     Active Substance: INSULIN GLARGINE
     Indication: Diabetes mellitus
     Dosage: SLIDING SCALE
     Route: 065
     Dates: end: 202405

REACTIONS (3)
  - Glycosylated haemoglobin increased [Unknown]
  - Antisocial behaviour [Unknown]
  - Lid sulcus deepened [Unknown]
